FAERS Safety Report 5190030-7 (Version None)
Quarter: 2006Q4

REPORT INFORMATION
  Report Type: 
  Country: None (occurrence: None)
  Receive Date: 20061215
  Receipt Date: 20061207
  Transmission Date: 20070319
  Serious: Yes (Disabling, Other)
  Sender: FDA-Public Use
  Company Number: 2006SP008036

PATIENT
  Age: 58 Year
  Sex: Male

DRUGS (4)
  1. NASONEX [Suspect]
     Indication: NASAL CONGESTION
     Dosage: NAS
     Route: 045
  2. NASONEX [Suspect]
     Indication: RESPIRATORY TRACT CONGESTION
     Dosage: NAS
     Route: 045
  3. SYMBICORT [Suspect]
     Indication: NASAL CONGESTION
  4. SYMBICORT [Suspect]
     Indication: RESPIRATORY TRACT CONGESTION

REACTIONS (5)
  - AORTIC VALVE REPLACEMENT [None]
  - LOSS OF EMPLOYMENT [None]
  - MENTAL DISORDER [None]
  - MITRAL VALVE REPLACEMENT [None]
  - TACHYCARDIA [None]
